FAERS Safety Report 8203644-4 (Version None)
Quarter: 2012Q1

REPORT INFORMATION
  Report Type: 
  Country: None (occurrence: None)
  Receive Date: 20120308
  Receipt Date: 20120222
  Transmission Date: 20120608
  Serious: Yes (Other)
  Sender: FDA-Public Use
  Company Number: PI-06760

PATIENT
  Age: 30 Year
  Sex: Female

DRUGS (1)
  1. CHLORAPREP [Suspect]
     Indication: PROCEDURAL COMPLICATION
     Dosage: 26ML, ONCE, TOPICAL
     Route: 061
     Dates: start: 20120222

REACTIONS (5)
  - SCLERAL DISORDER [None]
  - INFLAMMATION [None]
  - DRY EYE [None]
  - EYE BURNS [None]
  - ACCIDENTAL EXPOSURE [None]
